FAERS Safety Report 13120585 (Version 5)
Quarter: 2017Q2

REPORT INFORMATION
  Report Type: Spontaneous
  Country: US (occurrence: US)
  Receive Date: 20170117
  Receipt Date: 20170406
  Transmission Date: 20170830
  Serious: Yes (Hospitalization)
  Sender: FDA-Public Use
  Company Number: US-PFIZER INC-2017017925

PATIENT
  Sex: Female

DRUGS (3)
  1. SKELAXIN [Concomitant]
     Active Substance: METAXALONE
     Dosage: 800 MG, UNK
  2. RELPAX [Suspect]
     Active Substance: ELETRIPTAN HYDROBROMIDE
     Dosage: 40 MG, UNK (^6 BY 2^)
  3. PREMARIN [Concomitant]
     Active Substance: ESTROGENS, CONJUGATED
     Dosage: UNK

REACTIONS (5)
  - Malaise [Unknown]
  - Fall [Unknown]
  - Nausea [Unknown]
  - Pain [Unknown]
  - Scratch [Unknown]
